FAERS Safety Report 4935872-5 (Version None)
Quarter: 2006Q1

REPORT INFORMATION
  Report Type: 
  Country: None (occurrence: None)
  Receive Date: 20060302
  Receipt Date: 20060209
  Transmission Date: 20060701
  Serious: Yes (Hospitalization)
  Sender: FDA-Public Use
  Company Number: US200602002242

PATIENT
  Age: 33 Year
  Sex: Male

DRUGS (3)
  1. STRATTERA [Suspect]
     Indication: ATTENTION DEFICIT/HYPERACTIVITY DISORDER
     Dosage: SEE IMAGE, ORAL
     Route: 048
     Dates: start: 20040901, end: 20051001
  2. STRATTERA [Suspect]
     Indication: ATTENTION DEFICIT/HYPERACTIVITY DISORDER
     Dosage: SEE IMAGE, ORAL
     Route: 048
     Dates: start: 20051001
  3. MULTIVITAMINS (ASCORBIC ACID, ERGOCALCIFEROL, FOLIC ACID, NICOTINAMIDE [Concomitant]

REACTIONS (7)
  - BENIGN PROSTATIC HYPERPLASIA [None]
  - CONSTIPATION [None]
  - DYSURIA [None]
  - EPIDIDYMITIS [None]
  - HYPERHIDROSIS [None]
  - PAIN [None]
  - TREMOR [None]
